FAERS Safety Report 8088720-1 (Version None)
Quarter: 2012Q1

REPORT INFORMATION
  Report Type: 
  Country: None (occurrence: None)
  Receive Date: 20120128
  Receipt Date: 20110608
  Transmission Date: 20120608
  Serious: No
  Sender: FDA-Public Use
  Company Number: US-ABBOTT-11P-163-0730913-00

PATIENT
  Sex: Female

DRUGS (9)
  1. GABATROPIN [Concomitant]
     Indication: PAIN
  2. SIMVASTATIN [Concomitant]
     Indication: BLOOD CHOLESTEROL
  3. METHOTREXATE [Concomitant]
     Indication: ARTHRITIS
     Dosage: 6 PILLS EVERY WEEK
  4. ACTOS [Concomitant]
     Indication: DIABETES MELLITUS
  5. HUMIRA [Suspect]
     Indication: RHEUMATOID ARTHRITIS
     Route: 058
     Dates: start: 20110504
  6. POTASSIUM [Concomitant]
     Indication: PRODUCT USED FOR UNKNOWN INDICATION
     Dosage: ONE 10 MEQ PILL DAILY
  7. FUROSEMIDE [Concomitant]
     Indication: FLUID RETENTION
  8. MICARDIS [Concomitant]
     Indication: HYPERTENSION
  9. AMLODIPINE [Concomitant]
     Indication: HYPERTENSION
     Dosage: DE SLATE 10 MG

REACTIONS (1)
  - NO THERAPEUTIC RESPONSE [None]
